FAERS Safety Report 4766234-1 (Version None)
Quarter: 2005Q3

REPORT INFORMATION
  Report Type: 
  Country: None (occurrence: None)
  Receive Date: 20050912
  Receipt Date: 20050905
  Transmission Date: 20060218
  Serious: Yes (Hospitalization)
  Sender: FDA-Public Use
  Company Number: PHRM2005FR02401

PATIENT
  Age: 58 Year
  Sex: Male

DRUGS (6)
  1. TARDYFERON [Suspect]
     Route: 048
     Dates: start: 20050412, end: 20050706
  2. NEORECORMON [Suspect]
     Dosage: 3000 IU/WEEK
     Dates: start: 20050412, end: 20050523
  3. SOTALOL HCL [Concomitant]
     Route: 048
  4. BIPRETERAX [Concomitant]
     Route: 048
  5. DURAGESIC-100 [Concomitant]
     Route: 062
  6. ZOMETA [Suspect]
     Dosage: 1 DF, ONCE/SINGLE
     Dates: start: 20050621, end: 20050621

REACTIONS (4)
  - DERMATITIS BULLOUS [None]
  - OEDEMA PERIPHERAL [None]
  - PURPURA [None]
  - VASCULAR PURPURA [None]
